FAERS Safety Report 14689636 (Version 1)
Quarter: 2018Q1

REPORT INFORMATION
  Report Type: Other
  Country: FR (occurrence: FR)
  Receive Date: 20180328
  Receipt Date: 20180328
  Transmission Date: 20180509
  Serious: Yes (Hospitalization)
  Sender: FDA-Public Use
  Company Number: FR-GLENMARK PHARMACEUTICALS-2018GMK033694

PATIENT

DRUGS (5)
  1. DEPAKOTE 250 MG, COMPRIM? GASTRO-R?SISTANT [Concomitant]
     Indication: MENTAL DISORDER
     Dosage: 250 MG, QD
     Route: 048
     Dates: start: 2015, end: 20180103
  2. SERESTA 50 MG, COMPRIM? S?CABLE [Concomitant]
     Active Substance: OXAZEPAM
     Indication: MENTAL DISORDER
     Dosage: 50 MG, QD
     Route: 048
  3. LAMOTRIGINE. [Suspect]
     Active Substance: LAMOTRIGINE
     Indication: MENTAL DISORDER
     Dosage: 25 MG, QD
     Route: 048
     Dates: start: 20171223, end: 20180118
  4. XANAX [Concomitant]
     Active Substance: ALPRAZOLAM
     Indication: MENTAL DISORDER
     Dosage: UNK
     Route: 048
  5. EFFEXOR L.P. 75 MG, G?LULE ? LIB?RATION PROLONG?E [Concomitant]
     Indication: MENTAL DISORDER
     Dosage: 150 MG, QD
     Route: 048

REACTIONS (5)
  - Rash maculo-papular [Recovered/Resolved]
  - Face oedema [Recovered/Resolved]
  - Eosinophilia [Recovered/Resolved]
  - Cheilitis [Recovered/Resolved]
  - Mouth ulceration [Recovered/Resolved]

NARRATIVE: CASE EVENT DATE: 201801
